FAERS Safety Report 14245356 (Version 1)
Quarter: 2017Q4

REPORT INFORMATION
  Report Type: Spontaneous
  Country: US (occurrence: US)
  Receive Date: 20171202
  Receipt Date: 20171202
  Transmission Date: 20180321
  Serious: No
  Sender: FDA-Public Use
  Company Number: US-ENDO PHARMACEUTICALS INC-2017-005087

PATIENT
  Age: 46 Year
  Sex: Male
  Weight: 59.86 kg

DRUGS (1)
  1. XIAFLEX [Suspect]
     Active Substance: COLLAGENASE CLOSTRIDIUM HISTOLYTICUM
     Indication: PEYRONIE^S DISEASE
     Dosage: FIRST CYCLE OF 2 INJECTIONS IN THE PENIS SEPARATED BY APPROXIMATELY A WEEK
     Route: 065
     Dates: start: 201708, end: 201708

REACTIONS (4)
  - Gait inability [Unknown]
  - Penile pain [Recovered/Resolved]
  - Penile swelling [Recovered/Resolved]
  - Impaired work ability [Unknown]

NARRATIVE: CASE EVENT DATE: 201708
